FAERS Safety Report 7812261-7 (Version None)
Quarter: 2011Q4

REPORT INFORMATION
  Report Type: 
  Country: None (occurrence: None)
  Receive Date: 20111013
  Receipt Date: 20110823
  Transmission Date: 20120403
  Serious: No
  Sender: FDA-Public Use
  Company Number: US-NOVEN-11US003036

PATIENT
  Sex: Male
  Weight: 66.213 kg

DRUGS (2)
  1. FENTANYL [Suspect]
     Indication: BACK PAIN
     Dosage: 50 UG/HR, Q72H
     Route: 062
  2. FENTANYL [Suspect]
     Dosage: 75 UG/HR, Q72H
     Route: 062
     Dates: start: 20010101

REACTIONS (2)
  - PRODUCT QUALITY ISSUE [None]
  - DRUG ADMINISTRATION ERROR [None]
